FAERS Safety Report 5375562-0 (Version None)
Quarter: 2007Q2

REPORT INFORMATION
  Report Type: 
  Country: None (occurrence: None)
  Receive Date: 20070629
  Receipt Date: 20070619
  Transmission Date: 20071010
  Serious: Yes (Death)
  Sender: FDA-Public Use
  Company Number: DE-PFIZER INC-2007051472

PATIENT
  Sex: Female
  Weight: 66 kg

DRUGS (7)
  1. INSPRA [Suspect]
     Indication: CARDIAC FAILURE
     Route: 048
     Dates: start: 20070115, end: 20070122
  2. HYDROCHLOROTHIAZIDE [Concomitant]
  3. LEVOTHYROXINE SODIUM [Concomitant]
  4. ACETYLSALICYLIC ACID SRT [Concomitant]
  5. FUROSEMIDE [Concomitant]
  6. BISOPROLOL [Concomitant]
  7. ACTRAPHANE HM [Concomitant]

REACTIONS (5)
  - ACUTE HEPATIC FAILURE [None]
  - COAGULOPATHY [None]
  - HAEMORRHAGE [None]
  - RENAL FAILURE ACUTE [None]
  - THROMBOCYTOPENIA [None]
